FAERS Safety Report 11642892 (Version 20)
Quarter: 2020Q1

REPORT INFORMATION
  Report Type: Report from Study
  Country: CA (occurrence: CA)
  Receive Date: 20151020
  Receipt Date: 20200313
  Transmission Date: 20200409
  Serious: Yes (Hospitalization, Other)
  Sender: FDA-Public Use
  Company Number: CA-ROCHE-1633263

PATIENT
  Age: 62 Year
  Sex: Female
  Weight: 68 kg

DRUGS (24)
  1. COZARTAN [Concomitant]
  2. REPLAVITE [ASCORBIC ACID;BIOTIN;CYANOCOBALAMIN;FOLIC ACID;NICOTINAMIDE [Concomitant]
  3. IMURAN [Concomitant]
     Active Substance: AZATHIOPRINE
  4. SPIRONOLACTONE. [Concomitant]
     Active Substance: SPIRONOLACTONE
     Route: 065
  5. RITUXAN [Suspect]
     Active Substance: RITUXIMAB
     Route: 042
     Dates: start: 20190123
  6. ANCEF [Suspect]
     Active Substance: CEFAZOLIN SODIUM
     Indication: CELLULITIS
     Route: 065
  7. PREDNISONE. [Concomitant]
     Active Substance: PREDNISONE
     Route: 065
  8. SEPTRA [Concomitant]
     Active Substance: SULFAMETHOXAZOLE\TRIMETHOPRIM
     Dosage: 80/400
     Route: 065
     Dates: start: 201812, end: 201907
  9. CANDESARTAN. [Concomitant]
     Active Substance: CANDESARTAN
     Route: 065
  10. RITUXAN [Suspect]
     Active Substance: RITUXIMAB
     Indication: VASCULITIS
     Route: 042
     Dates: start: 20151007, end: 20180704
  11. CELLCEPT [Suspect]
     Active Substance: MYCOPHENOLATE MOFETIL\MYCOPHENOLATE MOFETIL HYDROCHLORIDE
     Indication: PRODUCT USED FOR UNKNOWN INDICATION
     Dosage: INITIAL DOSE IS UNKNOWN, THE DOSE WAS TAPERED TO 500 MG DAILY
     Route: 065
     Dates: start: 2008
  12. ACETAMINOPHEN. [Concomitant]
     Active Substance: ACETAMINOPHEN
     Indication: PREMEDICATION
     Route: 048
     Dates: start: 20130814
  13. ARANESP [Concomitant]
     Active Substance: DARBEPOETIN ALFA
  14. ATOVAQUONE. [Concomitant]
     Active Substance: ATOVAQUONE
     Route: 065
  15. RITUXAN [Suspect]
     Active Substance: RITUXIMAB
     Indication: MICROSCOPIC POLYANGIITIS
     Dosage: MOST RECENT RITUXIMAB RECEIVED ON 04/JUL/2018
     Route: 042
     Dates: start: 20130814, end: 20130828
  16. DIPHENHYDRAMINE HCL [Concomitant]
     Active Substance: DIPHENHYDRAMINE HYDROCHLORIDE
     Indication: PREMEDICATION
     Route: 048
     Dates: start: 20130814
  17. BISOPROLOL [Concomitant]
     Active Substance: BISOPROLOL
     Route: 065
  18. RITUXAN [Suspect]
     Active Substance: RITUXIMAB
     Dosage: DAY 1 AND DAY 15
     Route: 042
     Dates: start: 20190807
  19. LASIX [Concomitant]
     Active Substance: FUROSEMIDE
     Route: 065
  20. METHYLPREDNISOLONE. [Concomitant]
     Active Substance: METHYLPREDNISOLONE
     Indication: PREMEDICATION
     Route: 042
     Dates: start: 20130814
  21. SYNTHROID [Concomitant]
     Active Substance: LEVOTHYROXINE SODIUM
  22. CANDESARTAN. [Concomitant]
     Active Substance: CANDESARTAN
  23. SEPTRA [Concomitant]
     Active Substance: SULFAMETHOXAZOLE\TRIMETHOPRIM
     Dosage: 80/400
     Route: 065
  24. ZANTAC [Concomitant]
     Active Substance: RANITIDINE HYDROCHLORIDE
     Route: 065

REACTIONS (50)
  - White blood cell count decreased [Unknown]
  - Drug hypersensitivity [Unknown]
  - Episcleritis [Unknown]
  - Red blood cell count decreased [Unknown]
  - Blood pressure increased [Unknown]
  - Red blood cell count decreased [Unknown]
  - Ill-defined disorder [Recovering/Resolving]
  - Pyrexia [Recovered/Resolved]
  - Atypical pneumonia [Unknown]
  - Reticulocyte count decreased [Unknown]
  - Blood phosphorus increased [Unknown]
  - Lymphocyte count decreased [Unknown]
  - Blood magnesium decreased [Unknown]
  - Transferrin decreased [Unknown]
  - Cardiomegaly [Unknown]
  - Lower respiratory tract infection [Unknown]
  - Blood creatinine increased [Unknown]
  - Haemoglobin decreased [Unknown]
  - Red cell distribution width increased [Unknown]
  - Blood iron decreased [Unknown]
  - Dyspnoea [Unknown]
  - Lung opacity [Unknown]
  - Renal disorder [Unknown]
  - Cataract [Not Recovered/Not Resolved]
  - Uterine disorder [Unknown]
  - Blood phosphorus increased [Unknown]
  - Nasopharyngitis [Unknown]
  - Urea urine decreased [Unknown]
  - Blood parathyroid hormone increased [Unknown]
  - Cardiac failure [Unknown]
  - Oxygen saturation decreased [Unknown]
  - Blood potassium increased [Unknown]
  - Off label use [Unknown]
  - End stage renal disease [Unknown]
  - Blood urea increased [Unknown]
  - C-reactive protein increased [Unknown]
  - Oedema [Unknown]
  - Urine phosphorus decreased [Unknown]
  - Urine protein/creatinine ratio increased [Unknown]
  - C-reactive protein increased [Unknown]
  - Dyspnoea [Recovering/Resolving]
  - Cellulitis [Unknown]
  - Vasculitis [Not Recovered/Not Resolved]
  - Blood pressure systolic increased [Unknown]
  - Haematocrit decreased [Unknown]
  - Tonsillar disorder [Unknown]
  - Pulmonary hypertension [Unknown]
  - Haemoglobin decreased [Unknown]
  - Rash [Unknown]
  - Serum ferritin increased [Unknown]

NARRATIVE: CASE EVENT DATE: 2014
